FAERS Safety Report 7492908-8 (Version None)
Quarter: 2011Q2

REPORT INFORMATION
  Report Type: 
  Country: None (occurrence: None)
  Receive Date: 20110520
  Receipt Date: 20110510
  Transmission Date: 20111010
  Serious: Yes (Hospitalization)
  Sender: FDA-Public Use
  Company Number: US-BIOGENIDEC-2009BI016755

PATIENT
  Age: 42 Year
  Sex: Female

DRUGS (1)
  1. AVONEX [Suspect]
     Indication: MULTIPLE SCLEROSIS
     Route: 030
     Dates: start: 20031007

REACTIONS (8)
  - PYREXIA [None]
  - VISUAL FIELD DEFECT [None]
  - MUSCLE ATROPHY [None]
  - CARDIAC PERFORATION [None]
  - INJECTION SITE HAEMORRHAGE [None]
  - NIGHT SWEATS [None]
  - CARDIAC FAILURE CONGESTIVE [None]
  - AORTIC STENOSIS [None]
